FAERS Safety Report 5732547-X (Version None)
Quarter: 2008Q2

REPORT INFORMATION
  Report Type: 
  Country: None (occurrence: None)
  Receive Date: 20080507
  Receipt Date: 20080422
  Transmission Date: 20081010
  Serious: Yes (Hospitalization, Other)
  Sender: FDA-Public Use
  Company Number: JPKYO-L-20080002

PATIENT
  Age: 76 Year
  Sex: Male

DRUGS (11)
  1. NAVELBINE [Suspect]
     Indication: LUNG ADENOCARCINOMA STAGE III
     Dosage: 38 MG IV
     Route: 042
     Dates: start: 20070118, end: 20070118
  2. NAVELBINE [Suspect]
     Indication: LUNG ADENOCARCINOMA STAGE III
     Dosage: 35 MG QD
     Dates: start: 20070129, end: 20070319
  3. GEMZAR [Suspect]
     Dosage: 500 MG ONCE IV
     Route: 042
     Dates: start: 20070118, end: 20070118
  4. GEMZAR [Suspect]
     Dosage: 350 MG QD
     Dates: start: 20070129, end: 20070319
  5. DECADRON [Concomitant]
  6. HARNAL [Concomitant]
  7. AMOBAN [Concomitant]
  8. LAXOBERON [Concomitant]
  9. LOXONIN [Concomitant]
  10. SELBEX [Concomitant]
  11. ANPEC [Concomitant]

REACTIONS (3)
  - PLATELET COUNT DECREASED [None]
  - PNEUMONITIS [None]
  - WHITE BLOOD CELL COUNT DECREASED [None]
